FAERS Safety Report 23331067 (Version 2)
Quarter: 2023Q4

REPORT INFORMATION
  Report Type: Spontaneous
  Country: US (occurrence: US)
  Receive Date: 20231222
  Receipt Date: 20231228
  Transmission Date: 20240109
  Serious: Yes (Other)
  Sender: FDA-Public Use
  Company Number: US-JNJFOC-20231234509

PATIENT
  Sex: Female

DRUGS (3)
  1. SPRAVATO [Interacting]
     Active Substance: ESKETAMINE
     Indication: Product used for unknown indication
  2. ADDERALL [Concomitant]
     Active Substance: AMPHETAMINE ASPARTATE\AMPHETAMINE SULFATE\DEXTROAMPHETAMINE SACCHARATE\DEXTROAMPHETAMINE SULFATE
     Route: 065
  3. KETAMINE [Concomitant]
     Active Substance: KETAMINE
     Route: 065

REACTIONS (4)
  - Drug abuse [Unknown]
  - Drug interaction [Unknown]
  - Behaviour disorder [Unknown]
  - Drug diversion [Unknown]
